FAERS Safety Report 10377753 (Version 1)
Quarter: 2014Q3

REPORT INFORMATION
  Report Type: Report from Study
  Country: BR (occurrence: BR)
  Receive Date: 20140812
  Receipt Date: 20140812
  Transmission Date: 20150326
  Serious: Yes (Hospitalization)
  Sender: FDA-Public Use
  Company Number: PHHY2014BR099057

PATIENT
  Sex: Female

DRUGS (5)
  1. FORASEQ [Suspect]
     Active Substance: BUDESONIDE\FORMOTEROL FUMARATE
     Dosage: UNK UKN, BID
  2. TIOTROPIUM [Concomitant]
     Active Substance: TIOTROPIUM
     Dosage: 5 UG/DAY
  3. SALBUTAMOL [Concomitant]
     Active Substance: ALBUTEROL
     Dosage: UNK UKN, UNK
  4. FLUOXETINE [Concomitant]
     Active Substance: FLUOXETINE\FLUOXETINE HYDROCHLORIDE
     Dosage: UNK UKN, UNK
  5. LEVOTHYROXINE [Concomitant]
     Active Substance: LEVOTHYROXINE
     Dosage: UNK UKN, UNK

REACTIONS (12)
  - Cyanosis [Unknown]
  - Chest pain [Unknown]
  - Emphysema [Unknown]
  - Orthopnoea [Unknown]
  - Pulmonary hypertension [Recovering/Resolving]
  - Dyspnoea paroxysmal nocturnal [Unknown]
  - Oedema peripheral [Recovered/Resolved]
  - Cough [Unknown]
  - Dyspnoea [Recovering/Resolving]
  - Pleural effusion [Recovered/Resolved]
  - Cardiac failure [Recovering/Resolving]
  - Tachycardia [Unknown]
